FAERS Safety Report 6140459-5 (Version None)
Quarter: 2009Q2

REPORT INFORMATION
  Report Type: 
  Country: None (occurrence: None)
  Receive Date: 20090401
  Receipt Date: 20090320
  Transmission Date: 20091009
  Serious: Yes (Other)
  Sender: FDA-Public Use
  Company Number: AR-PFIZER INC-2009184009

PATIENT

DRUGS (2)
  1. CHAMPIX [Suspect]
     Dosage: UNK
     Route: 048
     Dates: start: 20080101, end: 20090201
  2. TOTAL MAGNESIANO [Concomitant]
     Dosage: UNK
     Route: 048

REACTIONS (5)
  - FACE OEDEMA [None]
  - GENERALISED OEDEMA [None]
  - MUSCLE CONTRACTURE [None]
  - MUSCLE SPASMS [None]
  - MYALGIA [None]
